FAERS Safety Report 16482178 (Version 4)
Quarter: 2019Q3

REPORT INFORMATION
  Report Type: Spontaneous
  Country: JP (occurrence: JP)
  Receive Date: 20190627
  Receipt Date: 20190717
  Transmission Date: 20191004
  Serious: Yes (Hospitalization)
  Sender: FDA-Public Use
  Company Number: JP-ABBVIE-19K-087-2833836-00

PATIENT
  Age: 68 Year
  Sex: Male

DRUGS (5)
  1. LOBENZARIT SODIUM [Concomitant]
     Active Substance: LOBENZARIT SODIUM
     Indication: PRODUCT USED FOR UNKNOWN INDICATION
  2. TACROLIMUS HYDRATE [Concomitant]
     Active Substance: TACROLIMUS
     Indication: RHEUMATOID ARTHRITIS
  3. METHOTREXATE. [Concomitant]
     Active Substance: METHOTREXATE
     Indication: RHEUMATOID ARTHRITIS
  4. HUMIRA [Suspect]
     Active Substance: ADALIMUMAB
     Indication: BEHCET^S SYNDROME
     Route: 058
     Dates: start: 2013
  5. PREDNISOLONE. [Concomitant]
     Active Substance: PREDNISOLONE
     Indication: RHEUMATOID ARTHRITIS

REACTIONS (7)
  - Diarrhoea [Not Recovered/Not Resolved]
  - Gastrointestinal erosion [Unknown]
  - Therapeutic product effect decreased [Unknown]
  - Abdominal pain [Not Recovered/Not Resolved]
  - Melaena [Unknown]
  - Cytomegalovirus infection [Recovering/Resolving]
  - Behcet^s syndrome [Unknown]

NARRATIVE: CASE EVENT DATE: 201906
